FAERS Safety Report 7772574-4 (Version None)
Quarter: 2011Q3

REPORT INFORMATION
  Report Type: 
  Country: None (occurrence: None)
  Receive Date: 20110922
  Receipt Date: 20110913
  Transmission Date: 20111222
  Serious: Yes (Other)
  Sender: FDA-Public Use
  Company Number: BR-ABBOTT-10P-020-0668123-00

PATIENT
  Sex: Female
  Weight: 48 kg

DRUGS (3)
  1. KALETRA [Suspect]
     Indication: HIV TEST POSITIVE
     Dosage: 2 TABLETS EACH 12 HOURS
     Route: 048
     Dates: start: 20100825, end: 20100901
  2. AZT [Concomitant]
     Indication: ANTIVIRAL PROPHYLAXIS
     Dosage: 150/300MG - 2 TIMES EVERY 24 HOURS
     Route: 048
     Dates: start: 20100825
  3. LAMIVUDINE [Concomitant]
     Indication: PRODUCT USED FOR UNKNOWN INDICATION
     Dosage: DAILY

REACTIONS (8)
  - BACK PAIN [None]
  - LIVER DISORDER [None]
  - DYSGEUSIA [None]
  - VOMITING [None]
  - ABDOMINAL DISCOMFORT [None]
  - ABDOMINAL PAIN UPPER [None]
  - MUSCLE SPASMS [None]
  - AMNIORRHOEA [None]
